FAERS Safety Report 18597245 (Version 1)
Quarter: 2020Q4

REPORT INFORMATION
  Report Type: Spontaneous
  Country: US (occurrence: US)
  Receive Date: 20201209
  Receipt Date: 20201209
  Transmission Date: 20210114
  Serious: No
  Sender: FDA-Public Use
  Company Number: US-IBSA PHARMA INC.-2020IBS000004

PATIENT

DRUGS (5)
  1. TIROSINT [Suspect]
     Active Substance: LEVOTHYROXINE SODIUM
     Dosage: 100 MCG, TWICE A WEEK
     Route: 048
  2. TIROSINT [Suspect]
     Active Substance: LEVOTHYROXINE SODIUM
     Indication: THYROID HORMONE REPLACEMENT THERAPY
     Dosage: QAM
     Route: 048
     Dates: start: 2015
  3. TIROSINT [Suspect]
     Active Substance: LEVOTHYROXINE SODIUM
     Dosage: 100 MCG, QWEEK
     Route: 048
     Dates: start: 20191102
  4. TIROSINT [Suspect]
     Active Substance: LEVOTHYROXINE SODIUM
     Dosage: 88 MCG, 6 DAYS OF WEEK
     Dates: start: 20201102
  5. TIROSINT [Suspect]
     Active Substance: LEVOTHYROXINE SODIUM
     Dosage: 88 MCG FOR 5 DAYS OF WEEK

REACTIONS (7)
  - Dry skin [Unknown]
  - Fatigue [Unknown]
  - Thyroid function test abnormal [Unknown]
  - Product storage error [Unknown]
  - Drug ineffective [Unknown]
  - Vision blurred [Unknown]
  - Joint swelling [Unknown]

NARRATIVE: CASE EVENT DATE: 20200202
